FAERS Safety Report 23626839 (Version 1)
Quarter: 2024Q1

REPORT INFORMATION
  Report Type: Spontaneous
  Country: US (occurrence: US)
  Receive Date: 20240313
  Receipt Date: 20240313
  Transmission Date: 20240409
  Serious: No
  Sender: FDA-Public Use
  Company Number: US-BAUSCH-BL-2024-003724

PATIENT
  Age: 61 Year
  Sex: Female

DRUGS (1)
  1. EFUDEX [Suspect]
     Active Substance: FLUOROURACIL
     Indication: Actinic keratosis
     Dosage: ONE APPLICATION ONCE DAILY TO THE AFFECTED AREAS ON HER CHEST AND FOREHEAD
     Route: 061
     Dates: start: 2024

REACTIONS (5)
  - Application site discharge [Unknown]
  - Application site haemorrhage [Unknown]
  - Application site pain [Unknown]
  - Application site scab [Unknown]
  - Inappropriate schedule of product administration [Unknown]

NARRATIVE: CASE EVENT DATE: 20240101
